FAERS Safety Report 5492996-4 (Version None)
Quarter: 2007Q4

REPORT INFORMATION
  Report Type: 
  Country: None (occurrence: None)
  Receive Date: 20071023
  Receipt Date: 20071015
  Transmission Date: 20080405
  Serious: Yes (Other)
  Sender: FDA-Public Use
  Company Number: BR-ASTRAZENECA-2007UW24196

PATIENT
  Age: 63 Year
  Sex: Female
  Weight: 120 kg

DRUGS (3)
  1. ATACAND [Suspect]
     Indication: HYPERTENSION
     Route: 048
     Dates: start: 20040101, end: 20061001
  2. ATACAND [Suspect]
     Dosage: ATACAND DOSE DOUBLED
     Route: 048
     Dates: start: 20061001
  3. MANIVASC [Concomitant]
     Indication: HYPERTENSION

REACTIONS (4)
  - ARRHYTHMIA [None]
  - DRUG INEFFECTIVE [None]
  - HYPERTENSION [None]
  - WEIGHT INCREASED [None]
